FAERS Safety Report 4690842-X (Version None)
Quarter: 2005Q2

REPORT INFORMATION
  Report Type: 
  Country: None (occurrence: None)
  Receive Date: 20050615
  Receipt Date: 20050608
  Transmission Date: 20051028
  Serious: Yes (Other)
  Sender: FDA-Public Use
  Company Number: US-JNJFOC-20050602705

PATIENT
  Sex: Female
  Weight: 99.79 kg

DRUGS (11)
  1. REMICADE [Suspect]
     Route: 042
  2. PREDNISONE TAB [Concomitant]
  3. PREMARIN [Concomitant]
  4. SYNTHROID [Concomitant]
  5. DYAZIDE [Concomitant]
  6. DYAZIDE [Concomitant]
  7. FOLIC ACID [Concomitant]
  8. PREVACID [Concomitant]
  9. PRINIVIL [Concomitant]
  10. METHOTREXATE SODIUM [Concomitant]
  11. MOBIC [Concomitant]

REACTIONS (1)
  - BREAST CANCER [None]
